FAERS Safety Report 13345382 (Version 2)
Quarter: 2017Q1

REPORT INFORMATION
  Report Type: Spontaneous
  Country: US (occurrence: US)
  Receive Date: 20170317
  Receipt Date: 20170329
  Transmission Date: 20170428
  Serious: No
  Sender: FDA-Public Use
  Company Number: US-HORIZON-ACT-0050-2017

PATIENT
  Age: 14 Year
  Sex: Male

DRUGS (4)
  1. ACTIMMUNE [Suspect]
     Active Substance: INTERFERON GAMMA-1B
     Indication: CHRONIC GRANULOMATOUS DISEASE
     Dosage: 0.35 ML THREE TIMES WEEKLY
     Dates: start: 20130719
  2. OMEPRAZOLE. [Concomitant]
     Active Substance: OMEPRAZOLE
  3. BACTRIM [Concomitant]
     Active Substance: SULFAMETHOXAZOLE\TRIMETHOPRIM
  4. DELZICOL [Concomitant]
     Active Substance: MESALAMINE

REACTIONS (3)
  - Lung disorder [Unknown]
  - Weight abnormal [Recovered/Resolved]
  - Appetite disorder [Recovered/Resolved]

NARRATIVE: CASE EVENT DATE: 201610
